FAERS Safety Report 15401090 (Version 1)
Quarter: 2018Q3

REPORT INFORMATION
  Report Type: Spontaneous
  Country: US (occurrence: US)
  Receive Date: 20180914
  Receipt Date: 20180914
  Transmission Date: 20181010
  Serious: No
  Sender: FDA-Public Use
  Company Number: None

PATIENT
  Age: 29 Year
  Sex: Female
  Weight: 75.15 kg

DRUGS (10)
  1. BEVACIZUMAB. [Suspect]
     Active Substance: BEVACIZUMAB
     Indication: HUMAN EPIDERMAL GROWTH FACTOR RECEPTOR NEGATIVE
     Route: 042
     Dates: start: 20180501
  2. VITAMIN B12 [Concomitant]
     Active Substance: CYANOCOBALAMIN
  3. BEVACIZUMAB. [Suspect]
     Active Substance: BEVACIZUMAB
     Indication: BREAST CANCER METASTATIC
     Route: 042
     Dates: start: 20180501
  4. VITAMIN D3 [Concomitant]
     Active Substance: CHOLECALCIFEROL
  5. BIOTIN [Concomitant]
     Active Substance: BIOTIN
  6. VITAMIN C [Concomitant]
     Active Substance: ASCORBIC ACID
  7. BEVACIZUMAB. [Suspect]
     Active Substance: BEVACIZUMAB
     Indication: OESTROGEN RECEPTOR ASSAY POSITIVE
     Route: 042
     Dates: start: 20180501
  8. BEVACIZUMAB. [Suspect]
     Active Substance: BEVACIZUMAB
     Indication: PROGESTERONE RECEPTOR ASSAY POSITIVE
     Route: 042
     Dates: start: 20180501
  9. TAMOXIFEN [Concomitant]
     Active Substance: TAMOXIFEN
  10. IRON [Concomitant]
     Active Substance: IRON

REACTIONS (10)
  - Nail disorder [None]
  - Nasal congestion [None]
  - Catheter site erythema [None]
  - Skin odour abnormal [None]
  - Lacrimation increased [None]
  - Catheter site inflammation [None]
  - Catheter site pain [None]
  - Clubbing [None]
  - Catheter site infection [None]
  - Catheter site related reaction [None]

NARRATIVE: CASE EVENT DATE: 20180802
